FAERS Safety Report 5847452-8 (Version None)
Quarter: 2008Q3

REPORT INFORMATION
  Report Type: 
  Country: None (occurrence: None)
  Receive Date: 20080813
  Receipt Date: 20080730
  Transmission Date: 20090109
  Serious: No
  Sender: FDA-Public Use
  Company Number: 001379

PATIENT
  Age: 36 Year
  Sex: Male
  Weight: 83 kg

DRUGS (6)
  1. PLETAL [Suspect]
     Indication: CEREBRAL INFARCTION
     Dosage: 100 MG, QD, ORAL
     Route: 048
     Dates: start: 20080401, end: 20080523
  2. FAMOTIDINE [Suspect]
     Dosage: ORAL
     Route: 048
     Dates: end: 20080520
  3. GLUFAST (MITIGLINIDE CALCIUM HYDRATE) TABLET [Concomitant]
  4. ADRENAL HORMONE PREPARATIONS (ADRENAL HORMONE PREPARATIONS) [Concomitant]
  5. ALOSENN (ACHILLEA, RUBIA ROOT TINCTURE, SENNA FRUIT, SENNA LEAF, TARAX [Concomitant]
  6. MAGMITT (MAGNESIUM OXIDE) TABLET [Concomitant]

REACTIONS (5)
  - ALANINE AMINOTRANSFERASE INCREASED [None]
  - ASPARTATE AMINOTRANSFERASE INCREASED [None]
  - BLOOD ALKALINE PHOSPHATASE INCREASED [None]
  - FATIGUE [None]
  - HEPATIC FUNCTION ABNORMAL [None]
